FAERS Safety Report 16388468 (Version 1)
Quarter: 2019Q3

REPORT INFORMATION
  Report Type: Spontaneous
  Country: US (occurrence: US)
  Receive Date: 20190601
  Receipt Date: 20190601
  Transmission Date: 20191004
  Serious: Yes (Death, Hospitalization)
  Sender: FDA-Public Use
  Company Number: None

PATIENT
  Age: 82 Year
  Sex: Female
  Weight: 45 kg

DRUGS (3)
  1. FENTANYL TRANSDERMAL SYSTEM [Suspect]
     Active Substance: FENTANYL
     Indication: PAIN
     Dosage: ?          QUANTITY:1 PATCH(ES);OTHER FREQUENCY:EVERY THREE DAYS;?
     Route: 062
     Dates: start: 20190128, end: 20190204
  2. MORPHINE CONCENTRATE 20MG/ML WAS ALSO GIVEN TWICE. [Concomitant]
  3. NONE [Concomitant]
     Active Substance: UNSPECIFIED INGREDIENT

REACTIONS (2)
  - Product use in unapproved therapeutic environment [None]
  - Coma [None]

NARRATIVE: CASE EVENT DATE: 20190128
